FAERS Safety Report 20339758 (Version 1)
Quarter: 2022Q1

REPORT INFORMATION
  Report Type: Report from Study
  Country: GB (occurrence: GB)
  Receive Date: 20220117
  Receipt Date: 20220117
  Transmission Date: 20220423
  Serious: Yes (Hospitalization)
  Sender: FDA-Public Use
  Company Number: GB-SAMSUNG BIOEPIS-SB-2022-00769

PATIENT
  Sex: Male

DRUGS (3)
  1. IMRALDI [Suspect]
     Active Substance: ADALIMUMAB
     Indication: Crohn^s disease
     Dosage: WEEK 0
     Route: 058
     Dates: start: 20211224
  2. IMRALDI [Suspect]
     Active Substance: ADALIMUMAB
     Dosage: WEEK 2
     Route: 058
  3. IMRALDI [Suspect]
     Active Substance: ADALIMUMAB
     Route: 058

REACTIONS (1)
  - Constipation [Recovered/Resolved]
